FAERS Safety Report 10080982 (Version 1)
Quarter: 2014Q2

REPORT INFORMATION
  Report Type: Spontaneous
  Country: US (occurrence: None)
  Receive Date: 20140414
  Receipt Date: 20140414
  Transmission Date: 20141212
  Serious: Yes (Other)
  Sender: FDA-Public Use
  Company Number: UTC-046983

PATIENT
  Age: 43 Year
  Sex: Female

DRUGS (2)
  1. TYVASO [Suspect]
     Indication: COR PULMONALE CHRONIC
     Dosage: 18 TO 54 MCG (4 IN 1 D), INHALATION
     Route: 055
     Dates: start: 20131108
  2. REVATIO (SILDENAFIL CITRATE) (SILDENAFIL CITRATE) [Concomitant]

REACTIONS (1)
  - Tracheostomy [None]
